FAERS Safety Report 12998963 (Version 1)
Quarter: 2016Q4

REPORT INFORMATION
  Report Type: Spontaneous
  Country: US (occurrence: US)
  Receive Date: 20161205
  Receipt Date: 20161205
  Transmission Date: 20170207
  Serious: Yes (Other)
  Sender: FDA-Public Use
  Company Number: US-OTSUKA-2016_028036

PATIENT
  Sex: Female

DRUGS (1)
  1. SAMSCA [Suspect]
     Active Substance: TOLVAPTAN
     Indication: PRODUCT USED FOR UNKNOWN INDICATION
     Dosage: UNK, QW
     Route: 048

REACTIONS (4)
  - Chest pain [Unknown]
  - Inappropriate schedule of drug administration [Unknown]
  - Extra dose administered [Unknown]
  - Malaise [Unknown]

NARRATIVE: CASE EVENT DATE: 20161127
